FAERS Safety Report 9826539 (Version 1)
Quarter: 2014Q1

REPORT INFORMATION
  Report Type: Spontaneous
  Country: US (occurrence: None)
  Receive Date: 20140116
  Receipt Date: 20140116
  Transmission Date: 20141002
  Serious: Yes (Disabling)
  Sender: FDA-Public Use
  Company Number: None

PATIENT
  Age: 36 Year
  Sex: Male
  Weight: 79.83 kg

DRUGS (2)
  1. ACITRETIN [Suspect]
     Indication: PSORIASIS
     Route: 048
     Dates: start: 20130801, end: 20130830
  2. MELOXICAM [Concomitant]

REACTIONS (3)
  - Immobile [None]
  - Gait disturbance [None]
  - Joint range of motion decreased [None]
